FAERS Safety Report 19570927 (Version 2)
Quarter: 2021Q3

REPORT INFORMATION
  Report Type: Report from Study
  Country: CN (occurrence: CN)
  Receive Date: 20210715
  Receipt Date: 20210720
  Transmission Date: 20211014
  Serious: Yes (Life-Threatening, Hospitalization, Other)
  Sender: FDA-Public Use
  Company Number: CN-ORGANON-O2107CHN000914

PATIENT
  Age: 59 Year
  Sex: Male
  Weight: 65 kg

DRUGS (16)
  1. LOSARTAN POTASSIUM. [Suspect]
     Active Substance: LOSARTAN POTASSIUM
     Dosage: 100 MILLIGRAM, QD
     Route: 048
     Dates: start: 20200928
  2. EPLERENONE. [Suspect]
     Active Substance: EPLERENONE
     Dosage: 50 MILLIGRAM, QD
     Route: 048
     Dates: start: 20200815, end: 20200908
  3. COZAAR [Suspect]
     Active Substance: LOSARTAN POTASSIUM
     Indication: ESSENTIAL HYPERTENSION
     Dosage: 50 MILLIGRAM, QD
     Route: 048
     Dates: start: 20200815, end: 20200908
  4. EPLERENONE. [Suspect]
     Active Substance: EPLERENONE
     Dosage: 50 MILLIGRAM, BID
     Route: 048
     Dates: start: 20200909
  5. FEBUXOSTAT. [Concomitant]
     Active Substance: FEBUXOSTAT
     Indication: HYPERURICAEMIA
     Dosage: 40 MILLIGRAM, QD
     Dates: start: 20200808, end: 20200828
  6. SODIUM BICARBONATE BP [Concomitant]
     Active Substance: SODIUM BICARBONATE
     Indication: HYPERURICAEMIA
     Dosage: 1.0 GRAMS, BID
     Route: 048
     Dates: start: 20200808, end: 20200828
  7. LOSARTAN POTASSIUM. [Suspect]
     Active Substance: LOSARTAN POTASSIUM
     Indication: ESSENTIAL HYPERTENSION
     Dosage: 50 MILLIGRAM, QD
     Route: 048
     Dates: start: 20200815, end: 20200908
  8. LOSARTAN POTASSIUM. [Suspect]
     Active Substance: LOSARTAN POTASSIUM
     Dosage: 100 MILLIGRAM, QD
     Route: 048
     Dates: start: 20200909
  9. LOSARTAN POTASSIUM. [Suspect]
     Active Substance: LOSARTAN POTASSIUM
     Dosage: 100 MILLIGRAM, QD (ANALOGUE TABLET)
     Route: 048
     Dates: start: 20200909
  10. EPLERENONE. [Suspect]
     Active Substance: EPLERENONE
     Dosage: 50 MILLIGRAM, QD (ANALOGUE TABLET)
     Route: 048
     Dates: start: 20200815, end: 20200908
  11. SODIUM BICARBONATE BP [Concomitant]
     Active Substance: SODIUM BICARBONATE
     Dosage: 2.0 GRAMS, BID
     Route: 048
     Dates: start: 20200808, end: 20200828
  12. EPLERENONE. [Suspect]
     Active Substance: EPLERENONE
     Dosage: 50 MILLIGRAM, BID (ANALOGUE TABLET)
     Route: 048
     Dates: start: 20200909
  13. LOSARTAN POTASSIUM. [Suspect]
     Active Substance: LOSARTAN POTASSIUM
     Dosage: 50 MILLIGRAM, QD (ANALOGUE TABLET)
     Route: 048
     Dates: start: 20200815, end: 20200908
  14. EPLERENONE. [Suspect]
     Active Substance: EPLERENONE
     Indication: ESSENTIAL HYPERTENSION
     Dosage: 50 MILLIGRAM, QD (ANALOGUE TABLET)
     Route: 048
     Dates: start: 20200731, end: 20200814
  15. LOSARTAN POTASSIUM. [Suspect]
     Active Substance: LOSARTAN POTASSIUM
     Indication: ESSENTIAL HYPERTENSION
     Dosage: 50 MILLIGRAM, QD (ANALOGUE TABLET)
     Route: 048
     Dates: start: 20200731, end: 20200814
  16. EPLERENONE. [Suspect]
     Active Substance: EPLERENONE
     Dosage: 50 MILLIGRAM, QD
     Route: 048
     Dates: start: 20200928

REACTIONS (1)
  - Aortic dissection [Recovering/Resolving]

NARRATIVE: CASE EVENT DATE: 20200929
